FAERS Safety Report 11512312 (Version 1)
Quarter: 2015Q3

REPORT INFORMATION
  Report Type: Spontaneous
  Country: US (occurrence: US)
  Receive Date: 20150916
  Receipt Date: 20150916
  Transmission Date: 20151125
  Serious: Yes (Hospitalization)
  Sender: FDA-Public Use
  Company Number: US-BEH-2015053819

PATIENT
  Sex: Male
  Weight: 108.2 kg

DRUGS (11)
  1. BERINERT [Suspect]
     Active Substance: HUMAN C1-ESTERASE INHIBITOR
     Indication: HEREDITARY ANGIOEDEMA
     Route: 042
  2. SODIUM CHLORIDE. [Concomitant]
     Active Substance: SODIUM CHLORIDE
  3. LMX [Concomitant]
     Active Substance: LIDOCAINE
  4. EPIPEN [Concomitant]
     Active Substance: EPINEPHRINE
     Indication: ANAPHYLACTIC REACTION
  5. FIRAZYR [Concomitant]
     Active Substance: ICATIBANT ACETATE
  6. LIDOCAINE/PRILOCAINE [Concomitant]
  7. ATENOLOL AND CHLORTHALIDONE [Concomitant]
     Active Substance: ATENOLOL\CHLORTHALIDONE
  8. HYDROCODONE [Concomitant]
     Active Substance: HYDROCODONE
  9. TYLENOL [Concomitant]
     Active Substance: ACETAMINOPHEN
  10. CINRYZE [Concomitant]
     Active Substance: HUMAN C1-ESTERASE INHIBITOR
  11. MULTIVITAMIN [Concomitant]
     Active Substance: VITAMINS

REACTIONS (1)
  - Umbilical hernia [Unknown]
